FAERS Safety Report 15682103 (Version 1)
Quarter: 2018Q4

REPORT INFORMATION
  Report Type: Spontaneous
  Country: US (occurrence: US)
  Receive Date: 20181203
  Receipt Date: 20181203
  Transmission Date: 20190205
  Serious: No
  Sender: FDA-Public Use
  Company Number: US-TEVA-2006-06687

PATIENT
  Age: 66 Year
  Sex: Male

DRUGS (3)
  1. WARFARIN SODIUM. [Suspect]
     Active Substance: WARFARIN SODIUM
     Indication: ATRIAL FIBRILLATION
     Dosage: 1.25 MILLIGRAM DAILY; 1.25 QDAY
     Route: 048
     Dates: start: 20060701
  2. DILTIA XT [Suspect]
     Active Substance: DILTIAZEM HYDROCHLORIDE
     Indication: ATRIAL FIBRILLATION
     Dosage: 180 MILLIGRAM DAILY; 180 MG QDAY
     Route: 048
     Dates: start: 20060701
  3. AMIODARONE [Suspect]
     Active Substance: AMIODARONE
     Indication: ATRIAL FIBRILLATION
     Dosage: 200 MILLIGRAM DAILY; 200 MG QDAY
     Route: 048
     Dates: start: 20060701

REACTIONS (4)
  - Large intestine polyp [Recovering/Resolving]
  - Diverticulum [Recovering/Resolving]
  - Colon adenoma [Recovering/Resolving]
  - Iron deficiency anaemia [Not Recovered/Not Resolved]

NARRATIVE: CASE EVENT DATE: 20060817
